FAERS Safety Report 5611109-9 (Version None)
Quarter: 2008Q1

REPORT INFORMATION
  Report Type: 
  Country: None (occurrence: None)
  Receive Date: 20080201
  Receipt Date: 20080122
  Transmission Date: 20080703
  Serious: Yes (Death)
  Sender: FDA-Public Use
  Company Number: US-KINGPHARMUSA00001-K200800098

PATIENT

DRUGS (8)
  1. ALTACE [Suspect]
     Route: 048
  2. VENLAFAXINE HCL [Suspect]
  3. HYDROCODONE BITARTRATE + ACETAMINOPHEN [Suspect]
  4. METFORMIN HCL [Suspect]
  5. DIAZEPAM [Suspect]
  6. GLIPIZIDE [Suspect]
  7. GABAPENTIN [Suspect]
  8. ANTIHISTAMINES [Suspect]

REACTIONS (1)
  - COMPLETED SUICIDE [None]
